FAERS Safety Report 8719930 (Version 5)
Quarter: 2014Q2

REPORT INFORMATION
  Report Type: Report from Study
  Country: AU (occurrence: AU)
  Receive Date: 20120813
  Receipt Date: 20140509
  Transmission Date: 20141212
  Serious: Yes (Other)
  Sender: FDA-Public Use
  Company Number: AU-009507513-0903USA03973

PATIENT
  Age: 67 Year
  Sex: Male
  Weight: 78.75 kg

DRUGS (5)
  1. SIMVASTATIN [Suspect]
     Indication: ACUTE CORONARY SYNDROME
     Route: 048
     Dates: start: 20070322
  2. ASPIRIN [Concomitant]
     Dosage: 150 MG, QD
     Route: 048
     Dates: start: 20070316
  3. CLOPIDOGREL BISULFATE [Concomitant]
     Dosage: 75 MG, QD
     Route: 048
     Dates: start: 20070316
  4. RAMIPRIL [Concomitant]
     Dosage: 2.5 MG, QD
     Route: 048
     Dates: start: 20070316
  5. METOPROLOL [Concomitant]
     Dosage: 50 MG, QD
     Route: 048
     Dates: start: 20070317

REACTIONS (20)
  - Basal cell carcinoma [Recovered/Resolved]
  - Squamous cell carcinoma [Recovered/Resolved]
  - Basal cell carcinoma [Recovered/Resolved]
  - Basal cell carcinoma [Recovered/Resolved]
  - Basal cell carcinoma [Recovered/Resolved]
  - Squamous cell carcinoma [Recovered/Resolved]
  - Squamous cell carcinoma [Recovered/Resolved]
  - Basal cell carcinoma [Recovered/Resolved]
  - Basal cell carcinoma [Recovered/Resolved]
  - Basal cell carcinoma [Recovered/Resolved]
  - Basal cell carcinoma [Recovered/Resolved]
  - Basal cell carcinoma [Recovered/Resolved]
  - Skin papilloma [Recovered/Resolved]
  - Squamous cell carcinoma [Recovered/Resolved]
  - Skin lesion [Recovered/Resolved]
  - Basal cell carcinoma [Recovered/Resolved]
  - Basal cell carcinoma [Recovered/Resolved]
  - Basal cell carcinoma [Recovered/Resolved]
  - Squamous cell carcinoma [Recovered/Resolved]
  - Basal cell carcinoma [Recovered/Resolved]
